FAERS Safety Report 5684865-1 (Version None)
Quarter: 2008Q1

REPORT INFORMATION
  Report Type: 
  Country: None (occurrence: None)
  Receive Date: 20080328
  Receipt Date: 19930121
  Transmission Date: 20080703
  Serious: Yes (Death, Other)
  Sender: FDA-Public Use
  Company Number: FR-ROCHE-22573

PATIENT
  Age: 75 Year
  Sex: Female

DRUGS (3)
  1. TICLID [Suspect]
     Indication: CEREBROVASCULAR ACCIDENT PROPHYLAXIS
     Route: 048
  2. BIFRMELANCE [Concomitant]
  3. TRAPIDIL [Concomitant]

REACTIONS (4)
  - AGITATION [None]
  - CEREBRAL HAEMORRHAGE [None]
  - HYPERTENSIVE CRISIS [None]
  - STRESS [None]
